FAERS Safety Report 4989650-1 (Version None)
Quarter: 2006Q2

REPORT INFORMATION
  Report Type: 
  Country: None (occurrence: None)
  Receive Date: 20060502
  Receipt Date: 20051208
  Transmission Date: 20061013
  Serious: Yes (Hospitalization)
  Sender: FDA-Public Use
  Company Number: US-MERCK-0512USA01285

PATIENT
  Age: 63 Year
  Sex: Male
  Weight: 75 kg

DRUGS (12)
  1. AMBIEN [Concomitant]
     Indication: SLEEP DISORDER
     Route: 065
  2. LANTUS [Concomitant]
     Indication: DIABETES MELLITUS
     Route: 065
  3. GLUCOPHAGE [Concomitant]
     Indication: DIABETES MELLITUS
     Route: 065
  4. VIOXX [Suspect]
     Indication: ARTHRITIS
     Route: 048
  5. FAMOTIDINE [Concomitant]
     Indication: DUODENAL ULCER
     Route: 065
  6. METFORMIN [Concomitant]
     Indication: DIABETES MELLITUS
     Route: 065
  7. GLUCOTROL [Concomitant]
     Indication: DIABETES MELLITUS
     Route: 065
  8. ALLEGRA [Concomitant]
     Indication: HYPERSENSITIVITY
     Route: 065
  9. AVANDIA [Concomitant]
     Indication: DIABETES MELLITUS
     Route: 065
  10. NEXIUM [Concomitant]
     Indication: OESOPHAGITIS
     Route: 065
  11. CELEBREX [Concomitant]
     Route: 065
  12. VIOXX [Suspect]
     Route: 048
     Dates: start: 20020221, end: 20030701

REACTIONS (9)
  - ARTERIOSCLEROSIS [None]
  - CARDIAC DISORDER [None]
  - CARDIAC FAILURE CONGESTIVE [None]
  - CHEST PAIN [None]
  - CORONARY ARTERY DISEASE [None]
  - MITRAL VALVE INCOMPETENCE [None]
  - MYOCARDIAL FIBROSIS [None]
  - MYOCARDIAL INFARCTION [None]
  - PRESCRIBED OVERDOSE [None]
